FAERS Safety Report 14516043 (Version 1)
Quarter: 2018Q1

REPORT INFORMATION
  Report Type: Report from Study
  Country: US (occurrence: US)
  Receive Date: 20180211
  Receipt Date: 20180211
  Transmission Date: 20180509
  Serious: No
  Sender: FDA-Public Use
  Company Number: US-PUMA BIOTECHNOLOGY, LTD.-2017US017128

PATIENT

DRUGS (3)
  1. LOMOTIL [Suspect]
     Active Substance: ATROPINE SULFATE\DIPHENOXYLATE HYDROCHLORIDE
     Indication: PRODUCT USED FOR UNKNOWN INDICATION
     Dosage: UNK
  2. NERLYNX [Suspect]
     Active Substance: NERATINIB
     Indication: CLOSTRIDIUM DIFFICILE COLITIS
     Dosage: 120 MG, DAILY
     Route: 048
  3. NERLYNX [Suspect]
     Active Substance: NERATINIB
     Indication: BREAST CANCER FEMALE
     Dosage: 80 MG (2 TABLETS), DAILY
     Route: 048
     Dates: start: 20171210

REACTIONS (12)
  - Dyspepsia [Unknown]
  - Insomnia [Unknown]
  - Constipation [Unknown]
  - Urine odour abnormal [Unknown]
  - Off label use [Unknown]
  - Dizziness [Unknown]
  - Incorrect dose administered [Unknown]
  - Decreased appetite [Unknown]
  - Abdominal pain upper [Unknown]
  - Diarrhoea [Unknown]
  - Skin odour abnormal [Unknown]
  - Fatigue [Unknown]
